FAERS Safety Report 10066421 (Version 4)
Quarter: 2015Q2

REPORT INFORMATION
  Report Type: Spontaneous
  Country: US (occurrence: US)
  Receive Date: 20140408
  Receipt Date: 20150427
  Transmission Date: 20150821
  Serious: Yes (Death, Life-Threatening, Hospitalization, Other)
  Sender: FDA-Public Use
  Company Number: US-009507513-1404USA004110

PATIENT
  Sex: Male
  Weight: 106.58 kg

DRUGS (2)
  1. JANUVIA [Suspect]
     Active Substance: SITAGLIPTIN PHOSPHATE
     Indication: TYPE 2 DIABETES MELLITUS
     Dosage: 100 MG, QD
     Route: 048
     Dates: start: 20070829, end: 20120702
  2. GLUCOPHAGE [Concomitant]
     Active Substance: METFORMIN HYDROCHLORIDE
     Indication: TYPE 2 DIABETES MELLITUS
     Dosage: 500 MG, QD-BID
     Route: 048
     Dates: start: 20070829

REACTIONS (20)
  - Benign prostatic hyperplasia [Unknown]
  - Pancreatic carcinoma [Fatal]
  - Cholelithiasis [Unknown]
  - Personality change [Unknown]
  - Urinary retention [Unknown]
  - Depression [Unknown]
  - Memory impairment [Unknown]
  - Nephrolithiasis [Unknown]
  - Metastases to liver [Unknown]
  - Pain [Unknown]
  - Urinary tract infection [Unknown]
  - Cerebral ischaemia [Not Recovered/Not Resolved]
  - Cerebrovascular accident [Unknown]
  - Chronic sinusitis [Not Recovered/Not Resolved]
  - Dyslipidaemia [Unknown]
  - Treatment noncompliance [Unknown]
  - Vitamin D deficiency [Unknown]
  - Chest pain [Recovered/Resolved]
  - Dyspnoea [Unknown]
  - Lacunar infarction [Unknown]

NARRATIVE: CASE EVENT DATE: 2011
